FAERS Safety Report 5463226-4 (Version None)
Quarter: 2007Q3

REPORT INFORMATION
  Report Type: 
  Country: None (occurrence: None)
  Receive Date: 20070920
  Receipt Date: 20070914
  Transmission Date: 20080115
  Serious: Yes (Other)
  Sender: FDA-Public Use
  Company Number: B0487721A

PATIENT
  Age: 46 Year
  Sex: Male

DRUGS (4)
  1. VENTOLIN [Suspect]
     Route: 055
     Dates: start: 20010101
  2. SERETIDE [Suspect]
     Route: 055
     Dates: start: 20040101
  3. SINGULAIR [Suspect]
     Indication: ASTHMA
     Dosage: 10MG PER DAY
     Route: 048
     Dates: start: 20070226, end: 20070228
  4. RHINOCORT [Suspect]
     Dosage: 64NG PER DAY
     Route: 045
     Dates: start: 20010101

REACTIONS (3)
  - MUSCULOSKELETAL PAIN [None]
  - PARAESTHESIA [None]
  - SENSORY LOSS [None]
